FAERS Safety Report 9524764 (Version 2)
Quarter: 2013Q4

REPORT INFORMATION
  Report Type: Spontaneous
  Country: JP (occurrence: None)
  Receive Date: 20130912
  Receipt Date: 20131226
  Transmission Date: 20140711
  Serious: Yes (Death)
  Sender: FDA-Public Use
  Company Number: 1890324

PATIENT
  Age: 47 Year
  Sex: Female
  Weight: 71 kg

DRUGS (11)
  1. DEXMEDETOMIDINE HYDROCHLORIDE [Suspect]
     Indication: SEDATION
     Route: 042
     Dates: start: 20120221, end: 20120226
  2. PROPOFOL [Suspect]
     Indication: SEDATION
     Route: 042
     Dates: start: 20120220, end: 20120225
  3. FENTANYL [Concomitant]
  4. HALOPERIDOL [Concomitant]
  5. CARPERITIDE [Concomitant]
  6. FUROSEMIDE [Concomitant]
  7. HYDROCORTISONE SODIUM SUCCINATE [Concomitant]
  8. MIIDAZOLAM [Concomitant]
  9. DANTROLENE SODIUM [Concomitant]
  10. DOBUTAMINE HYDROCHLORIDE [Concomitant]
  11. DOPAMINE HYDROCHLORIDE [Concomitant]

REACTIONS (12)
  - Rhabdomyolysis [None]
  - Circulatory collapse [None]
  - Continuous haemodiafiltration [None]
  - Acidosis [None]
  - Cardio-respiratory arrest [None]
  - Blood pressure decreased [None]
  - Red blood cell count decreased [None]
  - Haemoglobin decreased [None]
  - Haematocrit decreased [None]
  - Platelet count decreased [None]
  - Blood creatinine increased [None]
  - Urine output decreased [None]
